FAERS Safety Report 26047778 (Version 1)
Quarter: 2025Q4

REPORT INFORMATION
  Report Type: Spontaneous
  Country: US (occurrence: US)
  Receive Date: 20251114
  Receipt Date: 20251114
  Transmission Date: 20260118
  Serious: Yes (Other)
  Sender: CB FLEET
  Company Number: US-PRESTIGE-202511-US-003657

PATIENT
  Age: 72 Year
  Sex: Female

DRUGS (4)
  1. BC HEADACHE POWDER [Suspect]
     Active Substance: ASPIRIN\CAFFEINE
     Indication: Headache
     Dosage: 1 A DAY FOR 2 YEARS
     Route: 048
  2. BC HEADACHE POWDER [Suspect]
     Active Substance: ASPIRIN\CAFFEINE
     Indication: Pain
  3. ELIQUIS [Concomitant]
     Active Substance: APIXABAN
  4. FERROUS SULFATE [Concomitant]
     Active Substance: FERROUS SULFATE
     Dosage: ORAL

REACTIONS (4)
  - Haematochezia [Recovered/Resolved]
  - Melaena [Recovered/Resolved]
  - Intentional product misuse [None]
  - Underdose [None]
